FAERS Safety Report 14102711 (Version 1)
Quarter: 2017Q4

REPORT INFORMATION
  Report Type: Other
  Country: CO (occurrence: CO)
  Receive Date: 20171018
  Receipt Date: 20171018
  Transmission Date: 20180321
  Serious: Yes (Death, Hospitalization)
  Sender: FDA-Public Use
  Company Number: CO-TERSERA THERAPEUTICS, LLC-2030493

PATIENT
  Age: 79 Year
  Sex: Male

DRUGS (1)
  1. ZOLADEX [Suspect]
     Active Substance: GOSERELIN ACETATE
     Indication: PROSTATE CANCER
     Route: 058
     Dates: start: 20130501, end: 201708

REACTIONS (2)
  - Death [Fatal]
  - Bradycardia [Recovering/Resolving]

NARRATIVE: CASE EVENT DATE: 201610
